FAERS Safety Report 10341697 (Version 2)
Quarter: 2014Q3

REPORT INFORMATION
  Report Type: Spontaneous
  Country: US (occurrence: US)
  Receive Date: 20140725
  Receipt Date: 20140820
  Transmission Date: 20150326
  Serious: Yes (Hospitalization)
  Sender: FDA-Public Use
  Company Number: 2014SP004233

PATIENT
  Age: 70 Year
  Sex: Female

DRUGS (13)
  1. METRONIDAZOLE. [Concomitant]
     Active Substance: METRONIDAZOLE
     Dates: start: 20140703
  2. FAMOTIDINE. [Concomitant]
     Active Substance: FAMOTIDINE
     Dates: start: 20140630
  3. HEPARIN [Concomitant]
     Active Substance: HEPARIN SODIUM
     Dates: start: 20140701
  4. OXALIPLATIN. [Suspect]
     Active Substance: OXALIPLATIN
     Indication: COLORECTAL CANCER METASTATIC
     Route: 042
     Dates: start: 20140624
  5. FOLINIC ACID [Suspect]
     Active Substance: LEUCOVORIN
     Indication: COLORECTAL CANCER METASTATIC
     Route: 042
     Dates: start: 20140624
  6. MAGNESIUM SULPHATE /01097001/ [Concomitant]
     Active Substance: MAGNESIUM SULFATE
     Dates: start: 20140703
  7. CEFTRIAXONE SODIUM. [Concomitant]
     Active Substance: CEFTRIAXONE SODIUM
     Dates: start: 20140703
  8. IRINOTECAN [Suspect]
     Active Substance: IRINOTECAN
     Indication: COLORECTAL CANCER METASTATIC
     Route: 042
     Dates: start: 20140624
  9. FLUOROURACIL. [Suspect]
     Active Substance: FLUOROURACIL
     Indication: COLORECTAL CANCER METASTATIC
     Route: 042
     Dates: start: 20140624
  10. BEVACIZUMAB [Suspect]
     Active Substance: BEVACIZUMAB
     Indication: COLORECTAL CANCER METASTATIC
     Route: 042
     Dates: start: 20140623
  11. HEPARIN [Concomitant]
     Active Substance: HEPARIN SODIUM
     Dates: start: 20140630
  12. NALOXONE [Concomitant]
     Active Substance: NALOXONE
  13. MORPHINE /00036303/ [Concomitant]

REACTIONS (3)
  - Abdominal pain [Unknown]
  - Pneumoperitoneum [Unknown]
  - Large intestine perforation [Not Recovered/Not Resolved]

NARRATIVE: CASE EVENT DATE: 20140628
